FAERS Safety Report 6733756-3 (Version None)
Quarter: 2010Q2

REPORT INFORMATION
  Report Type: 
  Country: None (occurrence: None)
  Receive Date: 20100520
  Receipt Date: 20100514
  Transmission Date: 20101027
  Serious: Yes (Death, Other)
  Sender: FDA-Public Use
  Company Number: PHHY2010US31091

PATIENT
  Sex: Female
  Weight: 109.75 kg

DRUGS (12)
  1. FANAPT [Suspect]
     Indication: SCHIZOPHRENIA
     Dosage: 10 MG, BID
     Route: 048
     Dates: start: 20100414
  2. ALBUTEROL SULFATE [Concomitant]
     Indication: RESPIRATORY DISTRESS
     Dosage: 90 MCG, METERED DOSE, IN, EVERY 6 HOURS
  3. OXYGEN [Concomitant]
     Dosage: 2 L PER/MIN DURING HS
  4. ZOLOFT [Concomitant]
     Indication: DEPRESSION
     Dosage: 12.5MG
     Route: 048
  5. SYNTHROID [Concomitant]
     Indication: HYPOTHYROIDISM
     Dosage: 75 MCG, DAILY
     Route: 048
  6. COGENTIN [Concomitant]
     Indication: AKATHISIA
     Dosage: 1 MG, QHS
     Route: 048
  7. LOVASTATIN [Concomitant]
     Indication: DYSLIPIDAEMIA
     Dosage: 20MG, QHS
  8. LISINOPRIL [Concomitant]
     Indication: HYPERTENSION
     Dosage: 10MG, QHS
     Route: 048
  9. NORVASC [Concomitant]
     Indication: HYPERTENSION
     Dosage: 5 MG,DAILY
     Route: 048
  10. LASIX [Concomitant]
     Indication: OEDEMA
     Dosage: 20MG, BID
     Route: 048
  11. CLARITIN [Concomitant]
     Indication: HYPERSENSITIVITY
     Dosage: 10MG, DAILY
     Route: 048
  12. MOTRIN [Concomitant]
     Indication: PAIN
     Dosage: 200MG, EVERY 6 HOURS PRN
     Route: 048

REACTIONS (2)
  - CARDIAC ARREST [None]
  - SUDDEN DEATH [None]
